FAERS Safety Report 5945489-1 (Version None)
Quarter: 2008Q4

REPORT INFORMATION
  Report Type: 
  Country: None (occurrence: None)
  Receive Date: 20081107
  Receipt Date: 20081029
  Transmission Date: 20090506
  Serious: Yes (Hospitalization)
  Sender: FDA-Public Use
  Company Number: US-ABBOTT-08P-163-0484618-00

PATIENT
  Sex: Female

DRUGS (4)
  1. HUMIRA [Suspect]
     Indication: CROHN'S DISEASE
     Route: 058
     Dates: start: 20080201, end: 20080301
  2. HUMIRA [Suspect]
     Route: 058
     Dates: start: 20080901, end: 20081029
  3. PREDNISONE TAB [Suspect]
     Indication: DRUG USE FOR UNKNOWN INDICATION
  4. COLOZAL [Concomitant]
     Indication: DRUG USE FOR UNKNOWN INDICATION

REACTIONS (6)
  - DELUSION [None]
  - DEPRESSION [None]
  - HALLUCINATION [None]
  - MANIA [None]
  - PSYCHOTIC DISORDER [None]
  - THINKING ABNORMAL [None]
